FAERS Safety Report 25398647 (Version 2)
Quarter: 2025Q2

REPORT INFORMATION
  Report Type: Spontaneous
  Country: US (occurrence: US)
  Receive Date: 20250604
  Receipt Date: 20250612
  Transmission Date: 20250716
  Serious: No
  Sender: MALLINCKRODT
  Company Number: US-MALLINCKRODT-MNK202502980

PATIENT
  Age: 49 Year
  Sex: Female

DRUGS (12)
  1. CORTICOTROPIN [Suspect]
     Active Substance: CORTICOTROPIN
     Indication: Multiple sclerosis
     Route: 058
  2. OCREVUS [Concomitant]
     Active Substance: OCRELIZUMAB
  3. BOTOX [Concomitant]
     Active Substance: ONABOTULINUMTOXINA
  4. LEVOTHYROXINE [Concomitant]
     Active Substance: LEVOTHYROXINE
  5. GARLIC [Concomitant]
     Active Substance: GARLIC
  6. CO Q 10 [UBIDECARENONE] [Concomitant]
  7. CALCIUM [Concomitant]
     Active Substance: CALCIUM
  8. VITAMIN D3 [Concomitant]
     Active Substance: CHOLECALCIFEROL
  9. CYANOCOBALAMIN [Concomitant]
     Active Substance: CYANOCOBALAMIN
  10. COZAAR [Concomitant]
     Active Substance: LOSARTAN POTASSIUM
  11. COPAXONE [Concomitant]
     Active Substance: GLATIRAMER ACETATE
  12. HERBALS\TURMERIC [Concomitant]
     Active Substance: HERBALS\TURMERIC

REACTIONS (3)
  - General physical health deterioration [Unknown]
  - Malaise [Unknown]
  - Drug ineffective [Unknown]

NARRATIVE: CASE EVENT DATE: 20250602
